FAERS Safety Report 5413569-5 (Version None)
Quarter: 2007Q3

REPORT INFORMATION
  Report Type: 
  Country: None (occurrence: None)
  Receive Date: 20070814
  Receipt Date: 20070807
  Transmission Date: 20080115
  Serious: Yes (Other)
  Sender: FDA-Public Use
  Company Number: US-ASTRAZENECA-2007UW19110

PATIENT
  Sex: Female

DRUGS (3)
  1. CRESTOR [Suspect]
     Route: 048
     Dates: start: 20060101, end: 20070724
  2. ZETIA [Concomitant]
  3. INSULIN [Concomitant]

REACTIONS (2)
  - RENAL DISORDER [None]
  - URINARY TRACT INFECTION [None]
